FAERS Safety Report 16956399 (Version 1)
Quarter: 2019Q4

REPORT INFORMATION
  Report Type: Spontaneous
  Country: CA (occurrence: CA)
  Receive Date: 20191024
  Receipt Date: 20191024
  Transmission Date: 20200122
  Serious: Yes (Other)
  Sender: FDA-Public Use
  Company Number: CA-PFIZER INC-2019457314

PATIENT
  Age: 50 Year
  Sex: Female

DRUGS (5)
  1. PAMIDRONATE DISODIUM. [Suspect]
     Active Substance: PAMIDRONATE DISODIUM
     Dosage: 90 MG, EVERY 3 MONTHS
     Route: 042
  2. CLODRONATE DISODIUM [Suspect]
     Active Substance: CLODRONATE DISODIUM
     Dosage: UNK
     Route: 065
  3. ZOLADEX [Suspect]
     Active Substance: GOSERELIN ACETATE
     Dosage: UNK
     Route: 065
  4. LETROZOLE. [Suspect]
     Active Substance: LETROZOLE
     Indication: BREAST CANCER METASTATIC
     Dosage: 2.5 MG, UNK
     Route: 048
  5. TAMOXIFENE TEVA [Suspect]
     Active Substance: TAMOXIFEN
     Dosage: UNK
     Route: 065

REACTIONS (2)
  - Breast cancer [Unknown]
  - Malignant neoplasm progression [Unknown]
